FAERS Safety Report 15571774 (Version 2)
Quarter: 2019Q4

REPORT INFORMATION
  Report Type: Report from Study
  Country: GB (occurrence: GB)
  Receive Date: 20181031
  Receipt Date: 20191111
  Transmission Date: 20200122
  Serious: Yes (Other)
  Sender: FDA-Public Use
  Company Number: GB-SA-2018SA298131

PATIENT
  Sex: Female

DRUGS (2)
  1. ALIROCUMAB [Suspect]
     Active Substance: ALIROCUMAB
     Indication: DYSLIPIDAEMIA
     Dosage: 75 MG, QOW
     Route: 058
  2. ALIROCUMAB [Suspect]
     Active Substance: ALIROCUMAB
     Dosage: 150 MG, QOW

REACTIONS (4)
  - Malaise [Unknown]
  - Lung neoplasm malignant [Unknown]
  - Cardiomegaly [Unknown]
  - Nasopharyngitis [Unknown]

NARRATIVE: CASE EVENT DATE: 2019
